FAERS Safety Report 7282199-5 (Version None)
Quarter: 2011Q1

REPORT INFORMATION
  Report Type: 
  Country: None (occurrence: None)
  Receive Date: 20110209
  Receipt Date: 20110128
  Transmission Date: 20110831
  Serious: Yes (Other)
  Sender: FDA-Public Use
  Company Number: GB-BIOGENIDEC-2011BI003946

PATIENT
  Sex: Female

DRUGS (3)
  1. BECOTIDE [Concomitant]
  2. TYSABRI [Suspect]
     Indication: MULTIPLE SCLEROSIS
     Route: 042
  3. VENTOLIN [Concomitant]

REACTIONS (1)
  - OPPORTUNISTIC INFECTION [None]
